FAERS Safety Report 5744254-8 (Version None)
Quarter: 2008Q2

REPORT INFORMATION
  Report Type: 
  Country: None (occurrence: None)
  Receive Date: 20080516
  Receipt Date: 20080516
  Transmission Date: 20081010
  Serious: No
  Sender: FDA-Public Use
  Company Number: None

PATIENT
  Age: 34 Year
  Sex: Female
  Weight: 65.7716 kg

DRUGS (1)
  1. ZYRTEC-D 12 HOUR [Suspect]
     Indication: MULTIPLE ALLERGIES
     Dosage: 12 HOUR EXTENDED RELEASE 1 X DAY PO
     Route: 048

REACTIONS (4)
  - DRUG DEPENDENCE [None]
  - PRURITUS GENERALISED [None]
  - SCRATCH [None]
  - SKIN HAEMORRHAGE [None]
